FAERS Safety Report 4704744-3 (Version None)
Quarter: 2005Q2

REPORT INFORMATION
  Report Type: 
  Country: None (occurrence: None)
  Receive Date: 20050630
  Receipt Date: 20050616
  Transmission Date: 20051028
  Serious: Yes (Other)
  Sender: FDA-Public Use
  Company Number: 2005083443

PATIENT
  Age: 78 Year
  Sex: Female
  Weight: 56.6996 kg

DRUGS (4)
  1. ESTRING [Suspect]
     Indication: VULVOVAGINAL DRYNESS
     Dosage: (2 MG), VAGINAL/4 YEARS AGO
     Route: 067
  2. FOSAMAX [Concomitant]
  3. SYNTHROID [Concomitant]
  4. CALTRATE (CALCIUM CARBONATE) [Concomitant]

REACTIONS (4)
  - CATARACT OPERATION [None]
  - HYPERTENSION [None]
  - VAGINAL PAIN [None]
  - VULVOVAGINAL DISCOMFORT [None]
